FAERS Safety Report 6021697-9 (Version None)
Quarter: 2008Q4

REPORT INFORMATION
  Report Type: 
  Country: None (occurrence: None)
  Receive Date: 20081229
  Receipt Date: 20081209
  Transmission Date: 20090506
  Serious: Yes (Hospitalization, Other)
  Sender: FDA-Public Use
  Company Number: GB-MERCK-0805GBR00034

PATIENT
  Age: 68 Year
  Sex: Female

DRUGS (6)
  1. FOSAMAX [Suspect]
     Route: 048
  2. LEVOTHYROXINE SODIUM [Concomitant]
     Indication: THYROID DISORDER
     Route: 065
     Dates: start: 19940101
  3. TIOTROPIUM BROMIDE [Concomitant]
  4. CHLORHEXIDINE ACETATE [Concomitant]
     Route: 065
  5. CALCIUM CARBONATE [Concomitant]
     Route: 065
  6. METOCLOPRAMIDE [Concomitant]
     Route: 065

REACTIONS (4)
  - ANXIETY [None]
  - JAW FRACTURE [None]
  - OSTEOMYELITIS [None]
  - OSTEONECROSIS [None]
